FAERS Safety Report 11157788 (Version 2)
Quarter: 2015Q3

REPORT INFORMATION
  Report Type: Spontaneous
  Country: None (occurrence: None)
  Receive Date: 20150601
  Receipt Date: 20150723
  Transmission Date: 20151125
  Serious: Yes (Hospitalization)
  Sender: FDA-Public Use
  Company Number: 1713747-2015-999158

PATIENT
  Age: 68 Year
  Sex: Female
  Weight: 90.27 kg

DRUGS (3)
  1. DELFLEX [Suspect]
     Active Substance: CALCIUM CHLORIDE\DEXTROSE MONOHYDRATE\MAGNESIUM CHLORIDE\SODIUM CHLORIDE\SODIUM LACTATE
     Indication: PERITONEAL DIALYSIS
     Dosage: DAILY, INTRAPERITONEAL
     Route: 033
  2. LIBERTY CYCLER [Concomitant]
     Active Substance: DEVICE
  3. LIBERTY CYCLER CASSETTE [Concomitant]
     Active Substance: DEVICE

REACTIONS (4)
  - Abdominal pain lower [None]
  - Hypovolaemia [None]
  - Hypotension [None]
  - Lactic acidosis [None]

NARRATIVE: CASE EVENT DATE: 20150427
